FAERS Safety Report 25726030 (Version 1)
Quarter: 2025Q3

REPORT INFORMATION
  Report Type: Spontaneous
  Country: US (occurrence: US)
  Receive Date: 20250826
  Receipt Date: 20250826
  Transmission Date: 20251021
  Serious: No
  Sender: ABBVIE
  Company Number: US-ABBVIE-6425120

PATIENT
  Sex: Male

DRUGS (1)
  1. HUMIRA [Suspect]
     Active Substance: ADALIMUMAB
     Indication: Product used for unknown indication
     Route: 058
     Dates: start: 20250817

REACTIONS (4)
  - Nerve injury [Unknown]
  - Pain [Unknown]
  - Sensitive skin [Unknown]
  - Injection site pain [Unknown]

NARRATIVE: CASE EVENT DATE: 20250801
